FAERS Safety Report 14023431 (Version 1)
Quarter: 2017Q3

REPORT INFORMATION
  Report Type: Spontaneous
  Country: PL (occurrence: PL)
  Receive Date: 20170929
  Receipt Date: 20170929
  Transmission Date: 20171128
  Serious: Yes (Hospitalization)
  Sender: FDA-Public Use
  Company Number: PHHY2017PL140817

PATIENT
  Age: 31 Year
  Sex: Male

DRUGS (4)
  1. AMOXICILLIN CLAVULANIC ACID SANDOZ [Interacting]
     Active Substance: AMOXICILLIN\CLAVULANIC ACID
     Indication: UPPER RESPIRATORY TRACT INFECTION
     Route: 065
  2. METHOTREXATE. [Suspect]
     Active Substance: METHOTREXATE
     Indication: PSORIASIS
     Dosage: 10 MG, QW
     Route: 058
  3. METHOTREXATE. [Interacting]
     Active Substance: METHOTREXATE
     Dosage: 20 MG, QW
     Route: 058
  4. METHOTREXATE. [Interacting]
     Active Substance: METHOTREXATE
     Dosage: 15 MG, QW
     Route: 058

REACTIONS (6)
  - Skin lesion [Recovering/Resolving]
  - Pyrexia [Unknown]
  - Erythrodermic psoriasis [Recovering/Resolving]
  - Drug interaction [Unknown]
  - Drug ineffective [Unknown]
  - Inflammatory marker increased [Unknown]
